FAERS Safety Report 4745429-7 (Version None)
Quarter: 2005Q3

REPORT INFORMATION
  Report Type: 
  Country: None (occurrence: None)
  Receive Date: 20050811
  Receipt Date: 20050802
  Transmission Date: 20060218
  Serious: Yes (Other)
  Sender: FDA-Public Use
  Company Number: 2005087310

PATIENT
  Sex: Female
  Weight: 65.7716 kg

DRUGS (3)
  1. BEXTRA [Suspect]
     Indication: OSTEOARTHRITIS
     Dosage: (20 MG)
  2. CELEBREX [Suspect]
     Indication: OSTEOARTHRITIS
     Dosage: 200 MG (200 MG, 1 IN 1 D), ORAL
     Route: 048
  3. VITAMINS (VITAMINS) [Concomitant]

REACTIONS (14)
  - ABDOMINAL PAIN [None]
  - BODY HEIGHT DECREASED [None]
  - CONSTIPATION [None]
  - DRUG INEFFECTIVE [None]
  - FEELING ABNORMAL [None]
  - FIBROMYALGIA [None]
  - GASTRIC DISORDER [None]
  - HAEMORRHAGE [None]
  - HAEMORRHAGIC DIATHESIS [None]
  - PHARMACEUTICAL PRODUCT COMPLAINT [None]
  - SKIN ATROPHY [None]
  - SKIN INJURY [None]
  - SPINAL FRACTURE [None]
  - WEIGHT DECREASED [None]
